FAERS Safety Report 25571268 (Version 4)
Quarter: 2025Q3

REPORT INFORMATION
  Report Type: Report from Study
  Country: GB (occurrence: GB)
  Receive Date: 20250717
  Receipt Date: 20250904
  Transmission Date: 20251021
  Serious: Yes (Other)
  Sender: BAXTER
  Company Number: GB-BAXTER-2025BAX018237

PATIENT
  Age: 69 Year
  Sex: Female

DRUGS (31)
  1. WATER FOR INJECTION [Suspect]
     Active Substance: WATER
     Route: 042
     Dates: start: 20250710, end: 20250711
  2. WATER FOR INJECTION [Suspect]
     Active Substance: WATER
     Route: 042
     Dates: start: 20250805, end: 20250806
  3. WATER FOR INJECTION [Suspect]
     Active Substance: WATER
     Route: 042
     Dates: start: 20250828, end: 20250829
  4. DEXTROSE [Suspect]
     Active Substance: DEXTROSE MONOHYDRATE
     Route: 042
     Dates: start: 20250710, end: 20250711
  5. DEXTROSE [Suspect]
     Active Substance: DEXTROSE MONOHYDRATE
     Route: 042
     Dates: start: 20250805, end: 20250806
  6. DEXTROSE [Suspect]
     Active Substance: DEXTROSE MONOHYDRATE
     Route: 042
     Dates: start: 20250828, end: 20250829
  7. SYNTHAMIN [Suspect]
     Active Substance: AMINO ACIDS
     Indication: Parenteral nutrition
     Route: 042
     Dates: start: 20250710, end: 20250711
  8. SYNTHAMIN [Suspect]
     Active Substance: AMINO ACIDS
     Route: 065
     Dates: start: 20250805, end: 20250806
  9. SYNTHAMIN [Suspect]
     Active Substance: AMINO ACIDS
     Route: 042
     Dates: start: 20250828, end: 20250829
  10. IRON\MINERALS\POTASSIUM IOD\SODIUM FLUORIDE\SODIUM MOLYBDATE\SODIUM SE [Suspect]
     Active Substance: IRON\MINERALS\POTASSIUM IOD\SODIUM FLUORIDE\SODIUM MOLYBDATE\SODIUM SELENITE\ZINC
     Indication: Parenteral nutrition
     Route: 042
     Dates: start: 20250710, end: 20250711
  11. IRON\MINERALS\POTASSIUM IOD\SODIUM FLUORIDE\SODIUM MOLYBDATE\SODIUM SE [Suspect]
     Active Substance: IRON\MINERALS\POTASSIUM IOD\SODIUM FLUORIDE\SODIUM MOLYBDATE\SODIUM SELENITE\ZINC
     Route: 042
     Dates: start: 20250805, end: 20250806
  12. IRON\MINERALS\POTASSIUM IOD\SODIUM FLUORIDE\SODIUM MOLYBDATE\SODIUM SE [Suspect]
     Active Substance: IRON\MINERALS\POTASSIUM IOD\SODIUM FLUORIDE\SODIUM MOLYBDATE\SODIUM SELENITE\ZINC
     Route: 042
     Dates: start: 20250828, end: 20250829
  13. UNSPECIFIED INGREDIENT [Suspect]
     Active Substance: UNSPECIFIED INGREDIENT
     Route: 065
  14. MAGNESIUM SULFATE [Suspect]
     Active Substance: MAGNESIUM SULFATE
     Indication: Parenteral nutrition
     Route: 042
     Dates: start: 20250710, end: 20250711
  15. MAGNESIUM SULFATE [Suspect]
     Active Substance: MAGNESIUM SULFATE
     Route: 042
     Dates: start: 20250805, end: 20250806
  16. MAGNESIUM SULFATE [Suspect]
     Active Substance: MAGNESIUM SULFATE
     Route: 042
     Dates: start: 20250828, end: 20250829
  17. POTASSIUM CHLORIDE [Suspect]
     Active Substance: POTASSIUM CHLORIDE
     Indication: Parenteral nutrition
     Route: 042
     Dates: start: 20250710, end: 20250711
  18. POTASSIUM CHLORIDE [Suspect]
     Active Substance: POTASSIUM CHLORIDE
     Route: 042
     Dates: start: 20250805, end: 20250806
  19. POTASSIUM CHLORIDE [Suspect]
     Active Substance: POTASSIUM CHLORIDE
     Route: 042
     Dates: start: 20250828, end: 20250829
  20. SODIUM CHLORIDE [Suspect]
     Active Substance: SODIUM CHLORIDE
     Route: 042
     Dates: start: 20250710, end: 20250711
  21. SODIUM CHLORIDE [Suspect]
     Active Substance: SODIUM CHLORIDE
     Route: 042
     Dates: start: 20250805, end: 20250806
  22. SODIUM CHLORIDE [Suspect]
     Active Substance: SODIUM CHLORIDE
     Route: 042
     Dates: start: 20250828, end: 20250829
  23. SODIUM GLYCEROPHOSPHATE [Suspect]
     Active Substance: SODIUM GLYCEROPHOSPHATE
     Indication: Parenteral nutrition
     Route: 042
     Dates: start: 20250710, end: 20250711
  24. SODIUM GLYCEROPHOSPHATE [Suspect]
     Active Substance: SODIUM GLYCEROPHOSPHATE
     Route: 042
     Dates: start: 20250805, end: 20250806
  25. SODIUM GLYCEROPHOSPHATE [Suspect]
     Active Substance: SODIUM GLYCEROPHOSPHATE
     Route: 042
     Dates: start: 20250828, end: 20250829
  26. WATER FOR INJECTION [Suspect]
     Active Substance: WATER
     Route: 042
     Dates: start: 20250710, end: 20250711
  27. WATER FOR INJECTION [Suspect]
     Active Substance: WATER
     Route: 065
     Dates: start: 20250805, end: 20250806
  28. WATER FOR INJECTION [Suspect]
     Active Substance: WATER
     Route: 042
     Dates: start: 20250828, end: 20250829
  29. VITAMINS [Suspect]
     Active Substance: VITAMINS
     Indication: Parenteral nutrition
     Route: 042
     Dates: start: 20250710, end: 20250711
  30. VITAMINS [Suspect]
     Active Substance: VITAMINS
     Route: 065
     Dates: start: 20250805, end: 20250806
  31. VITAMINS [Suspect]
     Active Substance: VITAMINS
     Route: 042
     Dates: start: 20250828, end: 20250829

REACTIONS (5)
  - Nausea [Recovered/Resolved]
  - Malaise [Recovered/Resolved]
  - Nausea [Recovered/Resolved]
  - Nausea [Recovered/Resolved]
  - Malaise [Unknown]

NARRATIVE: CASE EVENT DATE: 20250710
